FAERS Safety Report 4608867-9 (Version None)
Quarter: 2005Q1

REPORT INFORMATION
  Report Type: 
  Country: None (occurrence: None)
  Receive Date: 20050311
  Receipt Date: 20050228
  Transmission Date: 20050727
  Serious: Yes (Death)
  Sender: FDA-Public Use
  Company Number: 2005037934

PATIENT
  Age: 62 Year
  Sex: Female
  Weight: 128 kg

DRUGS (3)
  1. AMLODIPINE [Suspect]
     Indication: HYPERTENSION
     Dosage: 10 MG (10 MG, DAILY), ORAL
     Route: 048
     Dates: start: 20041001
  2. DIURETICS (DIURETICS) [Concomitant]
  3. ACE INHIBITOR NOS (ACE INHIBITOR NOS) [Concomitant]

REACTIONS (1)
  - CEREBROVASCULAR ACCIDENT [None]
